FAERS Safety Report 11634224 (Version 2)
Quarter: 2015Q4

REPORT INFORMATION
  Report Type: Report from Study
  Country: IL (occurrence: IL)
  Receive Date: 20151015
  Receipt Date: 20151029
  Transmission Date: 20160304
  Serious: Yes (Hospitalization, Disabling)
  Sender: FDA-Public Use
  Company Number: IL-BAXALTA-2015BLT002166

PATIENT
  Age: 26 Year
  Sex: Male
  Weight: 72 kg

DRUGS (8)
  1. PEGYLATED RECOMBINANT HUMAN FACTOR VIII [Suspect]
     Active Substance: RURIOCTOCOG ALFA PEGOL
     Dosage: ONCE
     Route: 042
     Dates: start: 20151002, end: 20151002
  2. PEGYLATED RECOMBINANT HUMAN FACTOR VIII [Suspect]
     Active Substance: RURIOCTOCOG ALFA PEGOL
     Indication: FACTOR VIII DEFICIENCY
     Dosage: 3774 IU, ONCE
     Route: 042
     Dates: start: 20140617, end: 20140617
  3. PEGYLATED RECOMBINANT HUMAN FACTOR VIII [Suspect]
     Active Substance: RURIOCTOCOG ALFA PEGOL
     Dosage: ONCE
     Route: 042
     Dates: start: 20151006, end: 20151006
  4. PEGYLATED RECOMBINANT HUMAN FACTOR VIII [Suspect]
     Active Substance: RURIOCTOCOG ALFA PEGOL
     Dosage: 2X A DAY
     Route: 042
     Dates: start: 20151007
  5. PEGYLATED RECOMBINANT HUMAN FACTOR VIII [Suspect]
     Active Substance: RURIOCTOCOG ALFA PEGOL
     Dosage: ONCE
     Route: 042
     Dates: start: 20151006
  6. PEGYLATED RECOMBINANT HUMAN FACTOR VIII [Suspect]
     Active Substance: RURIOCTOCOG ALFA PEGOL
     Dosage: ONCE
     Route: 042
     Dates: start: 20151002, end: 20151002
  7. PEGYLATED RECOMBINANT HUMAN FACTOR VIII [Suspect]
     Active Substance: RURIOCTOCOG ALFA PEGOL
     Dosage: 2X A DAY
     Route: 042
     Dates: start: 20151007
  8. PEGYLATED RECOMBINANT HUMAN FACTOR VIII [Suspect]
     Active Substance: RURIOCTOCOG ALFA PEGOL
     Dosage: 2014 IU IV ONCE
     Route: 042
     Dates: start: 20151008

REACTIONS (1)
  - Facial bones fracture [Recovered/Resolved with Sequelae]

NARRATIVE: CASE EVENT DATE: 20151005
